FAERS Safety Report 7139303-9 (Version None)
Quarter: 2010Q4

REPORT INFORMATION
  Report Type: 
  Country: None (occurrence: None)
  Receive Date: 20101206
  Receipt Date: 20101022
  Transmission Date: 20110411
  Serious: No
  Sender: FDA-Public Use
  Company Number: A0888334A

PATIENT
  Age: 76 Year
  Sex: Female

DRUGS (8)
  1. LAMICTAL [Suspect]
     Dosage: 25MG PER DAY
     Route: 048
     Dates: start: 20101015
  2. GLIPIZIDE [Concomitant]
  3. LISINOPRIL [Concomitant]
  4. GLYBURIDE [Concomitant]
  5. METFORMIN [Concomitant]
  6. SYNTHROID [Concomitant]
  7. UNKNOWN MEDICATION [Concomitant]
  8. LOVASTATIN [Concomitant]

REACTIONS (2)
  - DIZZINESS [None]
  - VERTIGO [None]
